FAERS Safety Report 12376558 (Version 1)
Quarter: 2016Q2

REPORT INFORMATION
  Report Type: Spontaneous
  Country: US (occurrence: None)
  Receive Date: 20160516
  Receipt Date: 20160516
  Transmission Date: 20160815
  Serious: Yes (Other)
  Sender: FDA-Public Use
  Company Number: None

PATIENT
  Age: 54 Year
  Sex: Female
  Weight: 51.71 kg

DRUGS (8)
  1. METAXALONE. [Suspect]
     Active Substance: METAXALONE
  2. OXYCODON [Concomitant]
     Active Substance: OXYCODONE
  3. FLECTOR (DICLOFENAC) [Concomitant]
  4. GABAPENTIN, 100 MG CAPSULES [Suspect]
     Active Substance: GABAPENTIN
     Indication: RADICULOPATHY
     Route: 048
     Dates: start: 20160411, end: 20160422
  5. BACTRIM DS [Concomitant]
     Active Substance: SULFAMETHOXAZOLE\TRIMETHOPRIM
  6. ADDERALL [Concomitant]
     Active Substance: AMPHETAMINE ASPARTATE\AMPHETAMINE SULFATE\DEXTROAMPHETAMINE SACCHARATE\DEXTROAMPHETAMINE SULFATE
  7. PROGESTERONE. [Concomitant]
     Active Substance: PROGESTERONE
  8. DIVIGEL [Concomitant]
     Active Substance: ESTRADIOL

REACTIONS (19)
  - Ocular hyperaemia [None]
  - Bradyphrenia [None]
  - Muscle tightness [None]
  - Photophobia [None]
  - Flushing [None]
  - Thirst [None]
  - Apathy [None]
  - Hypoaesthesia [None]
  - Feeling hot [None]
  - Urinary retention [None]
  - Dry skin [None]
  - Lymphadenopathy [None]
  - Migraine [None]
  - Rash [None]
  - Dry mouth [None]
  - Memory impairment [None]
  - Neuralgia [None]
  - Stomatitis [None]
  - Decreased appetite [None]

NARRATIVE: CASE EVENT DATE: 20160418
